APPROVED DRUG PRODUCT: SUCRALFATE
Active Ingredient: SUCRALFATE
Strength: 1GM/10ML
Dosage Form/Route: SUSPENSION;ORAL
Application: A213549 | Product #001 | TE Code: AB
Applicant: PD PARTNERS III LLC
Approved: Jan 17, 2024 | RLD: No | RS: No | Type: RX